FAERS Safety Report 5322652-4 (Version None)
Quarter: 2007Q2

REPORT INFORMATION
  Report Type: 
  Country: None (occurrence: None)
  Receive Date: 20070511
  Receipt Date: 20070430
  Transmission Date: 20071010
  Serious: Yes (Hospitalization)
  Sender: FDA-Public Use
  Company Number: CA-JNJFOC-20070500145

PATIENT
  Age: 44 Year
  Sex: Female
  Weight: 42.63 kg

DRUGS (11)
  1. TOPAMAX [Suspect]
  2. TOPAMAX [Suspect]
     Indication: PAIN MANAGEMENT
  3. CIPROFLOXACIN [Suspect]
     Indication: DRUG USE FOR UNKNOWN INDICATION
  4. FORTEO [Suspect]
     Indication: OSTEOPOROSIS
     Route: 058
  5. DEMEROL [Concomitant]
  6. TYLENOL [Concomitant]
  7. OGEN [Concomitant]
  8. CALCIUM CHLORIDE [Concomitant]
  9. VITAMIN D [Concomitant]
  10. VITAMIN B-12 [Concomitant]
  11. MIACALCIN [Concomitant]

REACTIONS (29)
  - ANXIETY [None]
  - BURNING SENSATION [None]
  - CARDIOVASCULAR DISORDER [None]
  - CHEST DISCOMFORT [None]
  - CHEST PAIN [None]
  - CHOKING SENSATION [None]
  - CONVULSION [None]
  - DEPRESSED LEVEL OF CONSCIOUSNESS [None]
  - DIZZINESS [None]
  - DYSPNOEA [None]
  - GASTROOESOPHAGEAL REFLUX DISEASE [None]
  - HERPES ZOSTER [None]
  - HYPOAESTHESIA [None]
  - MUSCLE SPASMS [None]
  - MUSCULAR WEAKNESS [None]
  - MUSCULOSKELETAL CHEST PAIN [None]
  - NASOPHARYNGITIS [None]
  - PAIN IN EXTREMITY [None]
  - PALMAR ERYTHEMA [None]
  - PHARYNGEAL OEDEMA [None]
  - RIB FRACTURE [None]
  - SENSORY DISTURBANCE [None]
  - SKIN DISCOLOURATION [None]
  - SWELLING FACE [None]
  - SWOLLEN TONGUE [None]
  - THERAPEUTIC RESPONSE UNEXPECTED [None]
  - THROAT IRRITATION [None]
  - TREMOR [None]
  - WEIGHT DECREASED [None]
